FAERS Safety Report 15117113 (Version 2)
Quarter: 2018Q3

REPORT INFORMATION
  Report Type: Report from Study
  Country: DE (occurrence: DE)
  Receive Date: 20180706
  Receipt Date: 20180824
  Transmission Date: 20181010
  Serious: Yes (Congenital Anomaly, Other)
  Sender: FDA-Public Use
  Company Number: DE-SA-2018SA171014

PATIENT
  Sex: Female
  Weight: .33 kg

DRUGS (10)
  1. METHYLDOPA. [Suspect]
     Active Substance: METHYLDOPA
     Dosage: UNK (PREGNANCY WEEK 7(+3) TO 10)
     Route: 064
  2. INSULIN [Concomitant]
     Active Substance: INSULIN NOS
     Dosage: UNK
     Route: 064
  3. PERINDOPRIL [Suspect]
     Active Substance: PERINDOPRIL
     Dosage: UNK (PREGNANCY WEEK 0 TO 7 (+2))
     Route: 064
  4. HYDROCHLOROTHIAZIDE. [Suspect]
     Active Substance: HYDROCHLOROTHIAZIDE
     Dosage: UNK (PREGNANCY WEEK 0 TO 7 (+2))
     Route: 064
  5. METFORMIN HYDROCHLORIDE. [Suspect]
     Active Substance: METFORMIN HYDROCHLORIDE
     Dosage: UNK (PREGNANCY WEEK 0 TO 7 (+2))
     Route: 064
  6. METOPROLOL SALT NOT SPECIFIED [Suspect]
     Active Substance: METOPROLOL
     Dosage: UNK (PREGNANCY WEEK 7 (+3) TO 38)
     Route: 064
  7. BISOPROLOL SALT NOT SPECIFIED [Suspect]
     Active Substance: BISOPROLOL
     Dosage: UNK (PREGNANCY WEEK 0 TO 7 (+2))
     Route: 064
  8. INDAPAMIDE. [Suspect]
     Active Substance: INDAPAMIDE
     Dosage: UNK (PREGNANCY WEEK 0 TO 7 (+2))
     Route: 064
  9. AMLODIPINE [Suspect]
     Active Substance: AMLODIPINE BESYLATE
     Dosage: UNK (PREGNANCY WEEK 0 TO 7 (+2))
     Route: 064
  10. ALISKIREN [Suspect]
     Active Substance: ALISKIREN
     Dosage: UNK (PREGNANCY WEEK 0 TO 7 (+2))
     Route: 064

REACTIONS (6)
  - Congenital bladder anomaly [Unknown]
  - Intestinal malrotation [Unknown]
  - Persistent cloaca [Unknown]
  - Foetal exposure during pregnancy [Unknown]
  - Conjoined twins [Unknown]
  - Urachal abnormality [Unknown]

NARRATIVE: CASE EVENT DATE: 2018
